FAERS Safety Report 8321048-0 (Version None)
Quarter: 2012Q2

REPORT INFORMATION
  Report Type: 
  Country: None (occurrence: None)
  Receive Date: 20120430
  Receipt Date: 20120426
  Transmission Date: 20120825
  Serious: Yes (Life-Threatening, Hospitalization, Other)
  Sender: FDA-Public Use
  Company Number: PHHY2012BR016506

PATIENT
  Age: 77 Year
  Sex: Female
  Weight: 28.118 kg

DRUGS (14)
  1. FORADIL [Suspect]
     Indication: BRONCHOSPASM
  2. DIOVAN [Concomitant]
     Indication: HYPERTENSION
     Dosage: 1 DF, QD
     Dates: start: 20111201
  3. BEROTEC [Concomitant]
  4. PREDNISOLONE [Concomitant]
     Indication: WHEEZING
  5. TARGIFOR [Concomitant]
  6. FORMOTEROL FUMARATE [Concomitant]
  7. LEVOTHYROXINE SODIUM [Concomitant]
     Indication: THYROID DISORDER
  8. ACETYLCYSTEINE [Concomitant]
     Indication: INFLUENZA
  9. FORMOTEROL FUMARATE [Suspect]
     Indication: ASTHMA
  10. FORADIL [Suspect]
     Indication: BRONCHITIS
  11. FORMOTEROL FUMARATE [Suspect]
     Indication: CHRONIC OBSTRUCTIVE PULMONARY DISEASE
     Dosage: 3 DF, QD
  12. PANTOPRAZOLE [Concomitant]
  13. VITAMIN TAB [Concomitant]
  14. ATROVENT [Concomitant]
     Dosage: 20 DRP, UNK

REACTIONS (17)
  - CAPILLARY FRAGILITY [None]
  - SKIN DISCOLOURATION [None]
  - MEMORY IMPAIRMENT [None]
  - FEELING HOT [None]
  - OEDEMA PERIPHERAL [None]
  - ASTHMA [None]
  - THROMBOSIS [None]
  - COMA [None]
  - INFLUENZA [None]
  - DYSPHONIA [None]
  - BLOOD PRESSURE INCREASED [None]
  - WEIGHT DECREASED [None]
  - MALAISE [None]
  - HYPOAESTHESIA [None]
  - IMMUNODEFICIENCY [None]
  - TREMOR [None]
  - HEAD DISCOMFORT [None]
